FAERS Safety Report 11257632 (Version 7)
Quarter: 2016Q4

REPORT INFORMATION
  Report Type: Report from Study
  Country: CA (occurrence: CA)
  Receive Date: 20150710
  Receipt Date: 20161018
  Transmission Date: 20170206
  Serious: Yes (Other)
  Sender: FDA-Public Use
  Company Number: CA-ROCHE-1605578

PATIENT
  Sex: Female
  Weight: 127 kg

DRUGS (18)
  1. DOMPERIDONE [Concomitant]
     Active Substance: DOMPERIDONE
  2. FOLIC ACID. [Concomitant]
     Active Substance: FOLIC ACID
  3. WELLBUTRIN [Concomitant]
     Active Substance: BUPROPION HYDROCHLORIDE
  4. METHOTREXATE. [Concomitant]
     Active Substance: METHOTREXATE
     Route: 048
  5. SENOKOT-S [Concomitant]
     Active Substance: DOCUSATE SODIUM\SENNOSIDES
  6. FLONASE [Concomitant]
     Active Substance: FLUTICASONE PROPIONATE
  7. PREDNISONE. [Concomitant]
     Active Substance: PREDNISONE
  8. ACTONEL [Concomitant]
     Active Substance: RISEDRONATE SODIUM
  9. VERAPAMIL [Concomitant]
     Active Substance: VERAPAMIL HYDROCHLORIDE
  10. LORAZEPAM. [Concomitant]
     Active Substance: LORAZEPAM
  11. ABILIFY [Concomitant]
     Active Substance: ARIPIPRAZOLE
  12. HYDROMORPHONE [Concomitant]
     Active Substance: HYDROMORPHONE
  13. ADVAIR HFA [Concomitant]
     Active Substance: FLUTICASONE PROPIONATE\SALMETEROL XINAFOATE
  14. IBUPROFEN. [Concomitant]
     Active Substance: IBUPROFEN
  15. HYDROMORPH CONTIN [Concomitant]
     Active Substance: HYDROMORPHONE
  16. PLAQUENIL [Concomitant]
     Active Substance: HYDROXYCHLOROQUINE SULFATE
  17. ACTEMRA [Suspect]
     Active Substance: TOCILIZUMAB
     Indication: RHEUMATOID ARTHRITIS
     Route: 042
     Dates: start: 20141124
  18. PREVACID [Concomitant]
     Active Substance: LANSOPRAZOLE

REACTIONS (4)
  - Wound secretion [Not Recovered/Not Resolved]
  - Cellulitis [Recovered/Resolved]
  - Colon cancer [Unknown]
  - Weight decreased [Unknown]

NARRATIVE: CASE EVENT DATE: 2015
